FAERS Safety Report 7676627-0 (Version None)
Quarter: 2011Q3

REPORT INFORMATION
  Report Type: 
  Country: None (occurrence: None)
  Receive Date: 20110805
  Receipt Date: 20110721
  Transmission Date: 20111222
  Serious: Yes (Other)
  Sender: FDA-Public Use
  Company Number: 2011MA009245

PATIENT
  Age: 51 Year
  Sex: Female

DRUGS (3)
  1. TEMAZEPAM [Suspect]
     Indication: SUICIDAL IDEATION
     Dosage: 1000 MG;1X
  2. DIPYRIDAMOLE [Suspect]
     Indication: SUICIDAL IDEATION
     Dosage: 12000 MG;ONCE
  3. OXAZEPAM [Suspect]
     Indication: SUICIDAL IDEATION
     Dosage: 200 MG;ONCE

REACTIONS (12)
  - PLATELET DISORDER [None]
  - MULTIPLE DRUG OVERDOSE INTENTIONAL [None]
  - BLOOD PRESSURE DIASTOLIC DECREASED [None]
  - VOMITING [None]
  - LOSS OF CONSCIOUSNESS [None]
  - HEADACHE [None]
  - SELF-MEDICATION [None]
  - SUICIDE ATTEMPT [None]
  - TOXICITY TO VARIOUS AGENTS [None]
  - SOMNOLENCE [None]
  - CHEST PAIN [None]
  - ATRIOVENTRICULAR BLOCK FIRST DEGREE [None]
